FAERS Safety Report 20500551 (Version 1)
Quarter: 2022Q1

REPORT INFORMATION
  Report Type: Spontaneous
  Country: US (occurrence: None)
  Receive Date: 20220221
  Receipt Date: 20220221
  Transmission Date: 20220424
  Serious: Yes (Disabling)
  Sender: FDA-Public Use
  Company Number: None

PATIENT
  Age: 31 Year
  Sex: Female
  Weight: 136.5 kg

DRUGS (1)
  1. OLD SPICE HIGH ENDURANCE ORIGINAL [Suspect]
     Active Substance: ALUMINUM ZIRCONIUM TRICHLOROHYDREX GLY
     Dosage: FREQUENCY : ONCE;?
     Route: 061
     Dates: start: 20211224, end: 20211224

REACTIONS (10)
  - Chemical burn of skin [None]
  - Hypersensitivity [None]
  - Dermatitis allergic [None]
  - Skin infection [None]
  - Purulent discharge [None]
  - Skin weeping [None]
  - Skin wound [None]
  - Pain of skin [None]
  - Skin burning sensation [None]
  - Skin irritation [None]

NARRATIVE: CASE EVENT DATE: 20211224
